FAERS Safety Report 12774997 (Version 4)
Quarter: 2018Q4

REPORT INFORMATION
  Report Type: Spontaneous
  Country: US (occurrence: US)
  Receive Date: 20160923
  Receipt Date: 20181112
  Transmission Date: 20190204
  Serious: Yes (Other)
  Sender: FDA-Public Use
  Company Number: US-PFIZER INC-2016440463

PATIENT
  Age: 60 Year
  Sex: Male

DRUGS (1)
  1. DILANTIN [Suspect]
     Active Substance: PHENYTOIN
     Indication: GENERALISED TONIC-CLONIC SEIZURE
     Dosage: 200 MG, 2X/DAY (100MG CAPSULES, 2 IN THE MORNING AND 2 IN THE EVENING)
     Route: 048
     Dates: start: 1989

REACTIONS (2)
  - Petit mal epilepsy [Unknown]
  - Product prescribing error [Unknown]
